FAERS Safety Report 20109858 (Version 1)
Quarter: 2021Q4

REPORT INFORMATION
  Report Type: Spontaneous
  Country: US (occurrence: None)
  Receive Date: 20211124
  Receipt Date: 20211124
  Transmission Date: 20220304
  Serious: No
  Sender: FDA-Public Use
  Company Number: None

PATIENT
  Age: 45 Year
  Sex: Female
  Weight: 83.91 kg

DRUGS (3)
  1. RITUXAN [Suspect]
     Active Substance: RITUXIMAB
  2. Diphenhydramine lV 50MG [Concomitant]
  3. Solu-Medrol |V100MG [Concomitant]

REACTIONS (5)
  - Infusion related reaction [None]
  - Pruritus [None]
  - Pruritus [None]
  - Pruritus [None]
  - Cough [None]

NARRATIVE: CASE EVENT DATE: 20211120
